FAERS Safety Report 17868833 (Version 2)
Quarter: 2020Q2

REPORT INFORMATION
  Report Type: Spontaneous
  Country: US (occurrence: US)
  Receive Date: 20200607
  Receipt Date: 20200609
  Transmission Date: 20200714
  Serious: Yes (Death, Hospitalization, Other)
  Sender: FDA-Public Use
  Company Number: US-009507513-2006USA001939

PATIENT
  Sex: Female
  Weight: 46.6 kg

DRUGS (1)
  1. JANUMET [Suspect]
     Active Substance: METFORMIN HYDROCHLORIDE\SITAGLIPTIN PHOSPHATE
     Indication: TYPE 2 DIABETES MELLITUS
     Dosage: 1 TABLET, TWICE A DAY
     Route: 048
     Dates: start: 200906, end: 2009

REACTIONS (26)
  - Joint swelling [Unknown]
  - Alanine aminotransferase abnormal [Unknown]
  - Anxiety [Unknown]
  - Temperature intolerance [Unknown]
  - Blood glucose abnormal [Unknown]
  - Hypersensitivity [Unknown]
  - Pancreatic failure [Unknown]
  - Dyspnoea exertional [Unknown]
  - Musculoskeletal stiffness [Unknown]
  - Oropharyngeal pain [Unknown]
  - Nausea [Unknown]
  - Metastases to lung [Unknown]
  - Electrolyte depletion [Unknown]
  - Fatigue [Unknown]
  - Asthenia [Unknown]
  - Pancreatic carcinoma metastatic [Fatal]
  - Lip squamous cell carcinoma [Unknown]
  - Pancreatitis [Unknown]
  - Facial wasting [Unknown]
  - Vomiting [Unknown]
  - Drug hypersensitivity [Unknown]
  - Metastases to liver [Unknown]
  - Feeling abnormal [Unknown]
  - Hypomagnesaemia [Unknown]
  - Aspartate aminotransferase abnormal [Unknown]
  - Arthralgia [Unknown]

NARRATIVE: CASE EVENT DATE: 2009
